FAERS Safety Report 8087253-6 (Version None)
Quarter: 2012Q1

REPORT INFORMATION
  Report Type: 
  Country: None (occurrence: None)
  Receive Date: 20120128
  Receipt Date: 20110513
  Transmission Date: 20120608
  Serious: No
  Sender: FDA-Public Use
  Company Number: US-ABBOTT-11P-163-0725847-00

PATIENT
  Age: 40 Year
  Sex: Female

DRUGS (4)
  1. HUMIRA [Suspect]
     Indication: RHEUMATOID ARTHRITIS
     Dates: start: 20110427
  2. ZANAFLEX [Concomitant]
     Indication: HYPOTONIA
     Dosage: 1 TO 2 TABLETS, AT NIGHT
  3. GABAPENTIN [Concomitant]
     Indication: PAIN
     Dosage: 2-3 PILLS PRN Q6H
  4. METHOTREXATE [Concomitant]
     Indication: PRODUCT USED FOR UNKNOWN INDICATION
     Dosage: 2.5MG 6 TABS WEEKLY

REACTIONS (1)
  - NAUSEA [None]
